FAERS Safety Report 17824849 (Version 2)
Quarter: 2020Q2

REPORT INFORMATION
  Report Type: Spontaneous
  Country: TR (occurrence: TR)
  Receive Date: 20200526
  Receipt Date: 20200529
  Transmission Date: 20200714
  Serious: Yes (Life-Threatening, Hospitalization)
  Sender: FDA-Public Use
  Company Number: TR-B.I. PHARMACEUTICALS,INC./RIDGEFIELD-2020-BI-026298

PATIENT
  Age: 50 Year
  Sex: Male

DRUGS (2)
  1. INDOMETHACIN [INDOMETACIN] [Suspect]
     Active Substance: INDOMETHACIN
     Indication: PAIN IN EXTREMITY
     Route: 065
  2. PRADAXA [Suspect]
     Active Substance: DABIGATRAN ETEXILATE MESYLATE
     Indication: DEEP VEIN THROMBOSIS
     Route: 065

REACTIONS (11)
  - Acute kidney injury [Recovered/Resolved]
  - Pleural effusion [Unknown]
  - Dyspnoea [Unknown]
  - Pericardial effusion [Recovered/Resolved]
  - Toxicity to various agents [Not Recovered/Not Resolved]
  - Cardiomegaly [Not Recovered/Not Resolved]
  - Right ventricular diastolic collapse [Not Recovered/Not Resolved]
  - Breath sounds abnormal [Unknown]
  - Heart sounds abnormal [Unknown]
  - Sinus tachycardia [Unknown]
  - Pain in extremity [Unknown]
